FAERS Safety Report 4737443-2 (Version None)
Quarter: 2005Q3

REPORT INFORMATION
  Report Type: 
  Country: None (occurrence: None)
  Receive Date: 20050803
  Receipt Date: 20050720
  Transmission Date: 20060218
  Serious: Yes (Hospitalization)
  Sender: FDA-Public Use
  Company Number: DE_050716384

PATIENT
  Age: 86 Year
  Sex: Female
  Weight: 48 kg

DRUGS (2)
  1. FORTEO [Suspect]
     Indication: OSTEOPOROSIS
     Dosage: 20 UG DAY
     Dates: start: 20050418, end: 20050512
  2. DUROGESIC (FENTANYL) [Concomitant]

REACTIONS (4)
  - FALL [None]
  - HAEMATOMA [None]
  - OVERDOSE [None]
  - SYNCOPE VASOVAGAL [None]
